FAERS Safety Report 9404306 (Version 4)
Quarter: 2013Q4

REPORT INFORMATION
  Report Type: Spontaneous
  Country: JP (occurrence: JP)
  Receive Date: 20130717
  Receipt Date: 20131219
  Transmission Date: 20140711
  Serious: Yes (Hospitalization)
  Sender: FDA-Public Use
  Company Number: JP-ELI_LILLY_AND_COMPANY-JP201307003600

PATIENT
  Age: 60 Year
  Sex: Male
  Weight: 58 kg

DRUGS (6)
  1. ALIMTA [Suspect]
     Indication: LUNG ADENOCARCINOMA STAGE IV
     Dosage: 820 MG, OTHER
     Route: 042
     Dates: start: 20130424, end: 20130515
  2. AVASTIN /01555201/ [Suspect]
     Indication: LUNG ADENOCARCINOMA STAGE IV
     Dosage: 850 MG, OTHER
     Route: 042
     Dates: start: 20130424, end: 20130515
  3. CARBOPLATIN [Suspect]
     Indication: LUNG ADENOCARCINOMA STAGE IV
     Dosage: 290 MG, OTHER
     Route: 042
     Dates: start: 20130424, end: 20130515
  4. ZOMETA [Concomitant]
     Indication: METASTASES TO BONE
     Dosage: 4 MG, UNK
     Route: 042
     Dates: start: 20130321
  5. PANVITAN                           /00466101/ [Concomitant]
     Indication: PROPHYLAXIS
     Dosage: 1 G, QD
     Route: 048
     Dates: start: 20130301, end: 20130624
  6. METHYCOBAL [Concomitant]
     Indication: PROPHYLAXIS
     Dosage: 1000 UG, UNK
     Route: 030
     Dates: start: 20130301, end: 20130509

REACTIONS (2)
  - Jaundice [Recovering/Resolving]
  - Liver function test abnormal [Unknown]
